FAERS Safety Report 9748658 (Version 3)
Quarter: 2014Q1

REPORT INFORMATION
  Report Type: Report from Study
  Country: CN (occurrence: CN)
  Receive Date: 20131212
  Receipt Date: 20140225
  Transmission Date: 20141002
  Serious: Yes (Hospitalization, Other)
  Sender: FDA-Public Use
  Company Number: CN-ASTELLAS-2013US012900

PATIENT
  Age: 75 Year
  Sex: Male

DRUGS (1)
  1. ERLOTINIB TABLET [Suspect]
     Indication: NON-SMALL CELL LUNG CANCER
     Dosage: 150 MG, UID/QD
     Route: 048
     Dates: start: 20130221

REACTIONS (5)
  - Swelling [Not Recovered/Not Resolved]
  - Lymphadenopathy mediastinal [Unknown]
  - Pulmonary mass [Unknown]
  - Pleural effusion [Unknown]
  - Bronchitis [Not Recovered/Not Resolved]
